FAERS Safety Report 11720011 (Version 1)
Quarter: 2015Q4

REPORT INFORMATION
  Report Type: Spontaneous
  Country: US (occurrence: US)
  Receive Date: 20151110
  Receipt Date: 20151110
  Transmission Date: 20160304
  Serious: No
  Sender: FDA-Public Use
  Company Number: US-PERRIGO-15US000124

PATIENT
  Age: 49 Year
  Sex: Female
  Weight: 54.42 kg

DRUGS (1)
  1. CIMETIDINE  200 MG 022 [Suspect]
     Active Substance: CIMETIDINE
     Indication: ALOPECIA
     Dosage: 200 MG, BID
     Route: 048
     Dates: start: 20141123

REACTIONS (3)
  - Off label use [Not Recovered/Not Resolved]
  - No adverse event [Recovered/Resolved]
  - Incorrect drug administration duration [Unknown]

NARRATIVE: CASE EVENT DATE: 20141123
